FAERS Safety Report 8377069-5 (Version None)
Quarter: 2012Q2

REPORT INFORMATION
  Report Type: 
  Country: None (occurrence: None)
  Receive Date: 20120522
  Receipt Date: 20120518
  Transmission Date: 20120825
  Serious: Yes (Hospitalization)
  Sender: FDA-Public Use
  Company Number: TR-ROCHE-1070215

PATIENT
  Sex: Female

DRUGS (7)
  1. RITUXIMAB [Suspect]
     Indication: DIFFUSE LARGE B-CELL LYMPHOMA
     Route: 042
  2. VINCRISTINE [Concomitant]
     Dosage: DOSE REDUCED
  3. PREDNISOLONE [Concomitant]
     Route: 048
  4. CYCLOPHOSPHAMIDE [Concomitant]
     Dosage: DOSE REDUCED
  5. PREDNISOLONE [Concomitant]
     Dosage: DOSE REDUCED
  6. CYCLOPHOSPHAMIDE [Concomitant]
     Route: 042
  7. VINCRISTINE [Concomitant]
     Route: 042

REACTIONS (1)
  - GUILLAIN-BARRE SYNDROME [None]
